FAERS Safety Report 21379273 (Version 1)
Quarter: 2022Q3

REPORT INFORMATION
  Report Type: Report from Study
  Country: GB (occurrence: GB)
  Receive Date: 20220927
  Receipt Date: 20220927
  Transmission Date: 20221027
  Serious: Yes (Hospitalization, Other)
  Sender: FDA-Public Use
  Company Number: GB-BAXTER-2022BAX020264

PATIENT
  Age: 14 Year
  Sex: Male
  Weight: 69 kg

DRUGS (6)
  1. IFOSFAMIDE [Suspect]
     Active Substance: IFOSFAMIDE
     Indication: Osteosarcoma recurrent
     Dosage: 3000 MG/M2/DAY (5760 MG) ON DAY 1-3 OF EVERY 21 DAY CYCLE
     Route: 042
     Dates: start: 20210617, end: 20211002
  2. LENVATINIB [Suspect]
     Active Substance: LENVATINIB
     Indication: Osteosarcoma recurrent
     Dosage: 12 MG, ONCE A DAY
     Route: 048
     Dates: start: 20220504, end: 20220907
  3. ETOPOSIDE [Suspect]
     Active Substance: ETOPOSIDE
     Indication: Osteosarcoma recurrent
     Dosage: 100 MG/M2/DAY (192 MG) ON DAY 1-3 OF EVERY 21 DAY CYCLE
     Route: 042
     Dates: start: 20210617, end: 20211002
  4. LEVOTHYROXINE [Concomitant]
     Active Substance: LEVOTHYROXINE
     Indication: Product used for unknown indication
     Dosage: 75 MG, 1 D
     Route: 048
     Dates: start: 20220715
  5. Mst [Concomitant]
     Indication: Product used for unknown indication
     Dosage: 20 MG, 12 HR
     Route: 048
     Dates: start: 20220302
  6. DOCUSATE [Concomitant]
     Active Substance: DOCUSATE
     Indication: Product used for unknown indication
     Dosage: 200 MG, 12 HR (PRN)
     Route: 048
     Dates: start: 20190930

REACTIONS (1)
  - Pneumothorax [Recovering/Resolving]

NARRATIVE: CASE EVENT DATE: 20220907
